FAERS Safety Report 25001583 (Version 1)
Quarter: 2025Q1

REPORT INFORMATION
  Report Type: Spontaneous
  Country: CN (occurrence: CN)
  Receive Date: 20250223
  Receipt Date: 20250223
  Transmission Date: 20250409
  Serious: Yes (Life-Threatening)
  Sender: JIANGSU HENGRUI
  Company Number: CN-JIANGSU HENGRUI PHARMACEUTICALS CO., LTD.-H2025203433

PATIENT
  Age: 10 Year
  Weight: 25 kg

DRUGS (1)
  1. GADOTERATE MEGLUMINE [Suspect]
     Active Substance: GADOTERATE MEGLUMINE
     Indication: Magnetic resonance imaging

REACTIONS (4)
  - Vomiting [Recovering/Resolving]
  - Vision blurred [Recovering/Resolving]
  - Chest discomfort [Recovering/Resolving]
  - Muscular weakness [Recovering/Resolving]
